FAERS Safety Report 15161648 (Version 1)
Quarter: 2018Q3

REPORT INFORMATION
  Report Type: Report from Study
  Country: US (occurrence: US)
  Receive Date: 20180718
  Receipt Date: 20180718
  Transmission Date: 20181010
  Serious: No
  Sender: FDA-Public Use
  Company Number: US-AMGEN-USASP2014014796

PATIENT
  Age: 70 Year
  Sex: Female
  Weight: 126.98 kg

DRUGS (9)
  1. ENBREL [Suspect]
     Active Substance: ETANERCEPT
     Indication: PRODUCT USED FOR UNKNOWN INDICATION
     Dosage: 50 MG, QWK
     Route: 058
  2. DIOVAN [Concomitant]
     Active Substance: VALSARTAN
     Dosage: 40 MG, UNK
  3. ALLEGRA [Concomitant]
     Active Substance: FEXOFENADINE HYDROCHLORIDE
     Dosage: 30 MG, UNK
  4. XALATAN [Concomitant]
     Active Substance: LATANOPROST
     Dosage: 0.005%
  5. CLARITIN [Concomitant]
     Active Substance: LORATADINE
     Dosage: 10 MG, UNK
  6. ASPIRIN. [Concomitant]
     Active Substance: ASPIRIN
     Dosage: 81 MG, UNK
  7. CALCIUM [Concomitant]
     Active Substance: CALCIUM
     Dosage: 500 MG, UNK
  8. LOVASTATIN. [Concomitant]
     Active Substance: LOVASTATIN
     Dosage: 10 MG, UNK
  9. FUROSEMIDE. [Concomitant]
     Active Substance: FUROSEMIDE
     Dosage: 20 MG, UNK

REACTIONS (1)
  - Injection site rash [Unknown]
